FAERS Safety Report 7523197-3 (Version None)
Quarter: 2011Q2

REPORT INFORMATION
  Report Type: 
  Country: None (occurrence: None)
  Receive Date: 20110603
  Receipt Date: 20110602
  Transmission Date: 20111010
  Serious: Yes (Other)
  Sender: FDA-Public Use
  Company Number: US-UCBSA-030605

PATIENT
  Sex: Female
  Weight: 90.71 kg

DRUGS (15)
  1. SYNTHROID [Concomitant]
     Indication: AUTOIMMUNE THYROIDITIS
     Dosage: AM
     Route: 048
     Dates: start: 20060101
  2. CIMZIA [Suspect]
     Indication: RHEUMATOID ARTHRITIS
     Route: 058
     Dates: start: 20110130, end: 20110314
  3. MOTRIN [Concomitant]
     Indication: RHEUMATOID ARTHRITIS
     Dosage: 3 PRN, 2400MG/VARIABLE
     Route: 048
     Dates: start: 20090101
  4. FIORICET [Concomitant]
     Indication: MIGRAINE
     Dosage: 50/325MG, VARIABLE
     Route: 048
  5. KLONOPIN [Concomitant]
     Indication: AFFECTIVE DISORDER
     Dosage: 2-3 PRN, VARIABLE
     Route: 048
     Dates: start: 19990101
  6. LOPRESSOR [Concomitant]
     Indication: MIGRAINE
     Route: 048
     Dates: start: 20080101
  7. FOLIC ACID [Concomitant]
     Indication: RHEUMATOID ARTHRITIS
     Dosage: 2MG/AM AND 3MGHS
     Route: 048
     Dates: start: 20080101
  8. PREDNISONE [Concomitant]
     Indication: PAIN
     Route: 048
     Dates: start: 20101201, end: 20110301
  9. LIDODERM [Concomitant]
     Indication: RHEUMATOID ARTHRITIS
     Dosage: 5% ON/OFF Q 12 HRS
     Route: 061
     Dates: start: 20090101
  10. LOTREL [Concomitant]
     Indication: HYPERTENSION
     Dosage: 5MG/20MG ONE IN AM
     Route: 048
     Dates: start: 20090101
  11. ALLEGRA D 24 HOUR [Concomitant]
     Indication: SEASONAL ALLERGY
     Route: 048
  12. PREDNISONE [Concomitant]
     Indication: INFLAMMATION
     Route: 048
     Dates: start: 20101201, end: 20110301
  13. PREDNISONE [Concomitant]
     Route: 048
     Dates: start: 20110101, end: 20110101
  14. PREDNISONE [Concomitant]
     Route: 048
     Dates: start: 20110101, end: 20110101
  15. CALCIUM/VITAMIN D [Concomitant]
     Indication: OSTEOPENIA
     Route: 048
     Dates: start: 20090101

REACTIONS (3)
  - DRY EYE [None]
  - HYPERSENSITIVITY [None]
  - NASAL DRYNESS [None]
